FAERS Safety Report 8861127 (Version 1)
Quarter: 2012Q4

REPORT INFORMATION
  Report Type: Spontaneous
  Country: US (occurrence: None)
  Receive Date: 20121024
  Receipt Date: 20121024
  Transmission Date: 20130627
  Serious: Yes (Other)
  Sender: FDA-Public Use
  Company Number: None

PATIENT
  Age: 47 Year
  Sex: Female
  Weight: 74.8 kg

DRUGS (1)
  1. IMMUNOGLOBULIN INTRAVENOUS HUMAN [Suspect]
     Route: 042

REACTIONS (2)
  - Grand mal convulsion [None]
  - Headache [None]
